FAERS Safety Report 6874866-X (Version None)
Quarter: 2010Q2

REPORT INFORMATION
  Report Type: 
  Country: None (occurrence: None)
  Receive Date: 20100610
  Receipt Date: 20100505
  Transmission Date: 20101027
  Serious: No
  Sender: FDA-Public Use
  Company Number: 2010SP025560

PATIENT
  Sex: Male

DRUGS (3)
  1. SAPHRIS [Suspect]
     Indication: BIPOLAR DISORDER
     Dosage: 5 MG;QD;PO
     Route: 048
     Dates: end: 20100505
  2. SAPHRIS [Suspect]
     Indication: MANIA
     Dosage: 5 MG;QD;PO
     Route: 048
     Dates: end: 20100505
  3. ABILIFY [Concomitant]

REACTIONS (2)
  - INCORRECT ROUTE OF DRUG ADMINISTRATION [None]
  - SEDATION [None]
